FAERS Safety Report 4569563-X (Version None)
Quarter: 2005Q1

REPORT INFORMATION
  Report Type: 
  Country: None (occurrence: None)
  Receive Date: 20050201
  Receipt Date: 20050125
  Transmission Date: 20050727
  Serious: Yes (Death)
  Sender: FDA-Public Use
  Company Number: 2004AP03989

PATIENT
  Age: 35 Year
  Sex: Male

DRUGS (17)
  1. XYLOCAINE [Suspect]
     Indication: INFILTRATION ANAESTHESIA
     Dosage: 5 ML ONCE TP
     Route: 061
  2. XYLOCAINE [Suspect]
     Indication: LOCAL ANAESTHESIA
     Dosage: 5 ML ONCE TP
     Route: 061
  3. XYLOCAINE [Suspect]
     Indication: EPIDURAL ANAESTHESIA
     Dosage: 20 ML BID ED
  4. XYLOCAINE [Suspect]
     Indication: INFILTRATION ANAESTHESIA
     Dosage: 20 ML BID ED
  5. XYLOCAINE [Suspect]
     Indication: LOCAL ANAESTHESIA
     Dosage: 20 ML BID ED
  6. XYLOCAINE [Suspect]
     Indication: EPIDURAL ANAESTHESIA
     Dosage: 20 ML TP
     Route: 061
  7. XYLOCAINE [Suspect]
     Indication: INFILTRATION ANAESTHESIA
     Dosage: 20 ML TP
     Route: 061
  8. XYLOCAINE [Suspect]
     Indication: LOCAL ANAESTHESIA
     Dosage: 20 ML TP
     Route: 061
  9. XYLOCAINE [Suspect]
     Indication: EPIDURAL ANAESTHESIA
     Dosage: 15 ML TP
     Route: 061
  10. XYLOCAINE [Suspect]
     Indication: INFILTRATION ANAESTHESIA
     Dosage: 15 ML TP
     Route: 061
  11. XYLOCAINE [Suspect]
     Indication: LOCAL ANAESTHESIA
     Dosage: 15 ML TP
     Route: 061
  12. XYLOCAINE [Suspect]
     Indication: LOCAL ANAESTHESIA
  13. MUSCLE RELAXANT [Concomitant]
  14. SEDATIVE MEDICINE [Concomitant]
  15. SEDATIVE HYPNOTIC [Concomitant]
  16. GENERAL ANAESTHETICS [Concomitant]
  17. ANALGESICS [Concomitant]

REACTIONS (7)
  - ANAESTHETIC COMPLICATION [None]
  - BLOOD PRESSURE DECREASED [None]
  - BLOOD PRESSURE INCREASED [None]
  - CARDIAC ARREST [None]
  - OVERDOSE [None]
  - OXYGEN SATURATION DECREASED [None]
  - VENTRICULAR FLUTTER [None]
